FAERS Safety Report 20843869 (Version 1)
Quarter: 2022Q2

REPORT INFORMATION
  Report Type: Spontaneous
  Country: US (occurrence: None)
  Receive Date: 20220517
  Receipt Date: 20220517
  Transmission Date: 20220720
  Serious: No
  Sender: FDA-Public Use
  Company Number: None

PATIENT
  Sex: Female

DRUGS (4)
  1. HUMIRA [Suspect]
     Active Substance: ADALIMUMAB
     Indication: Hidradenitis
     Dosage: FREQUENCY : WEEKLY;?
     Route: 058
     Dates: start: 20210301
  2. RYBELSUS [Concomitant]
     Active Substance: SEMAGLUTIDE
  3. ESTRADIOL [Concomitant]
     Active Substance: ESTRADIOL
  4. SYNTHROID [Concomitant]
     Active Substance: LEVOTHYROXINE SODIUM

REACTIONS (4)
  - Pain [None]
  - Lymphadenopathy [None]
  - Cyst [None]
  - Sinusitis [None]
